FAERS Safety Report 4435146-5 (Version None)
Quarter: 2004Q3

REPORT INFORMATION
  Report Type: 
  Country: None (occurrence: None)
  Receive Date: 20040827
  Receipt Date: 20040525
  Transmission Date: 20050211
  Serious: Yes (Disabling)
  Sender: FDA-Public Use
  Company Number: FR-ROCHE-369567

PATIENT
  Age: 54 Year
  Sex: Female
  Weight: 65 kg

DRUGS (4)
  1. LARIAM [Suspect]
     Indication: MALARIA PROPHYLAXIS
     Route: 048
     Dates: start: 20040415, end: 20040505
  2. RISPERDAL [Concomitant]
     Indication: TIC
     Dosage: INCREASED TO 1 MG DAILY FROM 07-15 MAY 2004.
     Route: 048
     Dates: start: 20000101
  3. OMEPRAZOLE [Concomitant]
     Route: 048
     Dates: start: 19990101
  4. L-THYROXINE [Concomitant]
     Indication: THYROIDITIS
     Route: 048
     Dates: start: 19860101

REACTIONS (7)
  - AFFECT LABILITY [None]
  - CEREBRAL VENTRICLE DILATATION [None]
  - DEHYDRATION [None]
  - DISORIENTATION [None]
  - FATIGUE [None]
  - HYDROCEPHALUS [None]
  - TREMOR [None]
